FAERS Safety Report 16388493 (Version 1)
Quarter: 2019Q3

REPORT INFORMATION
  Report Type: Spontaneous
  Country: US (occurrence: US)
  Receive Date: 20190601
  Receipt Date: 20190601
  Transmission Date: 20191004
  Serious: Yes (Other)
  Sender: FDA-Public Use
  Company Number: None

PATIENT
  Age: 34 Year
  Sex: Female
  Weight: 60.75 kg

DRUGS (1)
  1. METRONIDAZOLE 500 MG TABS [Suspect]
     Active Substance: METRONIDAZOLE
     Indication: INFECTION
     Dosage: ?          OTHER FREQUENCY:AS A SINGLE DOSE;?
     Route: 048
     Dates: start: 20190601, end: 20190601

REACTIONS (4)
  - Confusional state [None]
  - Headache [None]
  - Chromaturia [None]
  - Hypersomnia [None]

NARRATIVE: CASE EVENT DATE: 20190601
